FAERS Safety Report 9068848 (Version 1)
Quarter: 2013Q1

REPORT INFORMATION
  Report Type: Spontaneous
  Country: GR (occurrence: None)
  Receive Date: 20130122
  Receipt Date: 20130122
  Transmission Date: 20140127
  Serious: Yes (Other)
  Sender: FDA-Public Use
  Company Number: IMP_06140_2013

PATIENT
  Age: 72 Year
  Sex: Female

DRUGS (1)
  1. LETROZOLE (LETROZOLE) [Suspect]
     Indication: PRODUCT USED FOR UNKNOWN INDICATION

REACTIONS (3)
  - Macular oedema [None]
  - Retinopathy [None]
  - Blindness unilateral [None]
